FAERS Safety Report 15315378 (Version 3)
Quarter: 2018Q3

REPORT INFORMATION
  Report Type: Report from Study
  Country: CO (occurrence: CO)
  Receive Date: 20180824
  Receipt Date: 20180919
  Transmission Date: 20181010
  Serious: Yes (Hospitalization)
  Sender: FDA-Public Use
  Company Number: CO-JNJFOC-20180821147

PATIENT
  Age: 76 Year
  Sex: Male
  Weight: 90 kg

DRUGS (2)
  1. IMBRUVICA [Suspect]
     Active Substance: IBRUTINIB
     Indication: CHRONIC LYMPHOCYTIC LEUKAEMIA
     Route: 048
     Dates: start: 20180424, end: 20180810
  2. IMBRUVICA [Suspect]
     Active Substance: IBRUTINIB
     Indication: CHRONIC LYMPHOCYTIC LEUKAEMIA
     Route: 048
     Dates: start: 20180911

REACTIONS (5)
  - Ischaemia [Recovering/Resolving]
  - Fall [Not Recovered/Not Resolved]
  - Cerebral haemorrhage [Recovering/Resolving]
  - Spinal pain [Not Recovered/Not Resolved]
  - Head injury [Recovering/Resolving]

NARRATIVE: CASE EVENT DATE: 201807
